FAERS Safety Report 22917014 (Version 2)
Quarter: 2023Q4

REPORT INFORMATION
  Report Type: Report from Study
  Country: US (occurrence: US)
  Receive Date: 20230907
  Receipt Date: 20231011
  Transmission Date: 20240110
  Serious: No
  Sender: FDA-Public Use
  Company Number: US-AGIOS-2309US03463

PATIENT

DRUGS (2)
  1. MITAPIVAT [Suspect]
     Active Substance: MITAPIVAT
     Indication: Thalassaemia
     Route: 065
  2. MITAPIVAT [Suspect]
     Active Substance: MITAPIVAT
     Indication: Off label use

REACTIONS (2)
  - Off label use [Unknown]
  - Therapeutic response unexpected [Unknown]
